FAERS Safety Report 5765674-1 (Version None)
Quarter: 2008Q2

REPORT INFORMATION
  Report Type: 
  Country: None (occurrence: None)
  Receive Date: 20080611
  Receipt Date: 20080603
  Transmission Date: 20081010
  Serious: Yes (Hospitalization)
  Sender: FDA-Public Use
  Company Number: FR-ABBOTT-08P-056-0454743-00

PATIENT
  Sex: Female

DRUGS (6)
  1. SEVORANE LIQUID FOR INHALATION [Suspect]
     Indication: SURGERY
     Route: 055
     Dates: start: 20080408, end: 20080408
  2. AMOXI-CLAVULANICO [Suspect]
     Indication: ANTIBIOTIC PROPHYLAXIS
     Dates: start: 20080408, end: 20080408
  3. PROPOFOL [Suspect]
     Indication: SURGERY
     Dates: start: 20080408, end: 20080408
  4. SUFENTANIL CITRATE [Suspect]
     Indication: ANALGESIC THERAPY
     Dates: start: 20080408, end: 20080408
  5. MIDAZOLAM HCL [Suspect]
     Indication: ANAESTHETIC PREMEDICATION
     Dates: start: 20080408, end: 20080408
  6. ACETAMINOPHEN AND TRAMADOL HCL [Suspect]
     Indication: POSTOPERATIVE ANALGESIA
     Route: 048
     Dates: start: 20080409, end: 20080409

REACTIONS (1)
  - RENAL FAILURE ACUTE [None]
